FAERS Safety Report 9097795 (Version 2)
Quarter: 2013Q1

REPORT INFORMATION
  Report Type: Spontaneous
  Country: US (occurrence: US)
  Receive Date: 20130212
  Receipt Date: 20130313
  Transmission Date: 20140127
  Serious: No
  Sender: FDA-Public Use
  Company Number: US-009507513-1302USA005124

PATIENT
  Sex: Female
  Weight: 72.56 kg

DRUGS (4)
  1. CLARITIN REDITABS [Suspect]
     Indication: NASAL CONGESTION
     Dosage: 10 MG, QD
     Route: 048
  2. CLARITIN REDITABS [Suspect]
     Indication: UPPER-AIRWAY COUGH SYNDROME
  3. CLARITIN REDITABS [Suspect]
     Indication: MEDICAL OBSERVATION
  4. LOSARTIN [Concomitant]
     Indication: HYPERTENSION
     Dosage: UNK, UNKNOWN

REACTIONS (1)
  - Drug ineffective [Unknown]
